FAERS Safety Report 5749561-0 (Version None)
Quarter: 2008Q2

REPORT INFORMATION
  Report Type: 
  Country: None (occurrence: None)
  Receive Date: 20080520
  Receipt Date: 20080520
  Transmission Date: 20081010
  Serious: Yes (Hospitalization)
  Sender: FDA-Public Use
  Company Number: None

PATIENT
  Age: 86 Year
  Sex: Male
  Weight: 90 kg

DRUGS (1)
  1. CODEINE AND GUAIFENESIN [Suspect]
     Indication: PNEUMONIA
     Dosage: 10 ML OTHER PO
     Route: 048
     Dates: start: 20080518, end: 20080519

REACTIONS (3)
  - LETHARGY [None]
  - SEDATION [None]
  - UNRESPONSIVE TO STIMULI [None]
